FAERS Safety Report 13918336 (Version 1)
Quarter: 2017Q3

REPORT INFORMATION
  Report Type: Spontaneous
  Country: US (occurrence: US)
  Receive Date: 20170829
  Receipt Date: 20170829
  Transmission Date: 20171127
  Serious: No
  Sender: FDA-Public Use
  Company Number: US-SA-2017SA140524

PATIENT
  Sex: Female

DRUGS (1)
  1. FABRAZYME [Suspect]
     Active Substance: AGALSIDASE BETA
     Indication: FABRY^S DISEASE
     Route: 041
     Dates: start: 20170301, end: 201707

REACTIONS (12)
  - Pain in extremity [Unknown]
  - Abdominal pain upper [Unknown]
  - Temperature intolerance [Unknown]
  - Exercise tolerance decreased [Unknown]
  - Dizziness [Unknown]
  - Corneal deposits [Unknown]
  - Tinnitus [Unknown]
  - Product use issue [Unknown]
  - Exposure during pregnancy [Unknown]
  - Aortic valve thickening [Unknown]
  - Muscular weakness [Unknown]
  - Nausea [Unknown]
